FAERS Safety Report 5992248-X (Version None)
Quarter: 2008Q4

REPORT INFORMATION
  Report Type: 
  Country: None (occurrence: None)
  Receive Date: 20081202
  Receipt Date: 20080701
  Transmission Date: 20090506
  Serious: Yes (Other)
  Sender: FDA-Public Use
  Company Number: WAES 0807USA00362

PATIENT
  Age: 65 Year
  Sex: Female

DRUGS (8)
  1. FOSAMAX [Suspect]
     Indication: OSTEOPOROSIS
     Dosage: 70 MG/WKY/PO
     Route: 048
     Dates: start: 20000101, end: 20080401
  2. DIOVAN [Concomitant]
  3. KLONOPIN [Concomitant]
  4. NORVASC [Concomitant]
  5. SYNTHROID [Concomitant]
  6. VIVELLE [Concomitant]
  7. ASPIRIN [Concomitant]
  8. CALCIUM (UNSPECIFIED) [Concomitant]

REACTIONS (1)
  - OSTEONECROSIS [None]
